FAERS Safety Report 7910501-7 (Version None)
Quarter: 2011Q4

REPORT INFORMATION
  Report Type: 
  Country: None (occurrence: None)
  Receive Date: 20111111
  Receipt Date: 20111104
  Transmission Date: 20120403
  Serious: Yes (Hospitalization)
  Sender: FDA-Public Use
  Company Number: PHHO2011ES018423

PATIENT
  Sex: Female

DRUGS (9)
  1. OMEPRAZOLE [Concomitant]
     Indication: PROPHYLAXIS
     Dosage: 20 MG, QD
     Dates: start: 20110915
  2. REPAGLINIDE [Concomitant]
     Indication: DIABETES MELLITUS
     Dosage: 0.8 MG, TID
     Dates: start: 20111014
  3. LISINOPRIL AND HYDROCHLOROTHIAZIDE [Concomitant]
     Indication: HYPERTENSION
     Dosage: 20 MG/12.5MG/ 12 HOURS
     Dates: start: 20000101
  4. ACETAMINOPHEN [Concomitant]
     Indication: PAIN
     Dosage: PRN
  5. SOM230 [Suspect]
     Dosage: 60 MG, PER 28 DAYS
     Dates: start: 20111014, end: 20111014
  6. AFINITOR [Suspect]
     Indication: PANCREATIC NEUROENDOCRINE TUMOUR
     Dosage: 10 MG, QD
     Route: 048
     Dates: start: 20111014, end: 20111102
  7. ZOLPIDEM [Concomitant]
     Indication: INSOMNIA
     Dosage: PRN
     Dates: start: 20110915
  8. EMULIQUEN SIMPLE [Concomitant]
     Indication: CONSTIPATION
     Dosage: PRN
  9. METFORMIN HCL [Concomitant]
     Indication: DIABETES MELLITUS
     Dosage: 850 MG, QD
     Dates: start: 20000101

REACTIONS (1)
  - DIABETIC KETOACIDOSIS [None]
